FAERS Safety Report 5714742-9 (Version None)
Quarter: 2008Q2

REPORT INFORMATION
  Report Type: 
  Country: None (occurrence: None)
  Receive Date: 20080423
  Receipt Date: 20060113
  Transmission Date: 20081010
  Serious: Yes (Death, Hospitalization)
  Sender: FDA-Public Use
  Company Number: US-ROCHE-431695

PATIENT
  Age: 74 Year
  Sex: Female

DRUGS (10)
  1. CAPECITABINE [Suspect]
     Route: 048
     Dates: start: 20051212, end: 20051226
  2. OXALIPLATIN [Suspect]
     Route: 042
     Dates: start: 20051212, end: 20051212
  3. EVISTA [Concomitant]
     Route: 048
  4. PROTONIX [Concomitant]
     Route: 048
  5. CITRACAL [Concomitant]
     Route: 048
  6. LORAZEPAM [Concomitant]
  7. CELEXA [Concomitant]
     Route: 048
  8. IMODIUM [Concomitant]
     Route: 048
  9. COMPAZINE [Concomitant]
  10. ZOFRAN [Concomitant]

REACTIONS (2)
  - DEATH [None]
  - DEHYDRATION [None]
